FAERS Safety Report 6545885-8 (Version None)
Quarter: 2010Q1

REPORT INFORMATION
  Report Type: 
  Country: None (occurrence: None)
  Receive Date: 20100121
  Receipt Date: 20091009
  Transmission Date: 20100710
  Serious: No
  Sender: FDA-Public Use
  Company Number: US-ALLERGAN-0914057US

PATIENT
  Sex: Female

DRUGS (1)
  1. TAZORAC [Suspect]
     Indication: ACNE
     Dosage: UNK
     Dates: start: 20090901, end: 20091005

REACTIONS (2)
  - PRURITUS [None]
  - SKIN EXFOLIATION [None]
